FAERS Safety Report 16010410 (Version 1)
Quarter: 2019Q1

REPORT INFORMATION
  Report Type: Spontaneous
  Country: DK (occurrence: DK)
  Receive Date: 20190225
  Receipt Date: 20190225
  Transmission Date: 20190418
  Serious: Yes (Hospitalization, Other)
  Sender: FDA-Public Use
  Company Number: DK-SUN PHARMACEUTICAL INDUSTRIES LTD-2019RR-199781

PATIENT
  Age: 70 Year
  Sex: Male

DRUGS (3)
  1. LEUCOVORIN. [Suspect]
     Active Substance: LEUCOVORIN
     Indication: RECTAL CANCER
     Dosage: AS ADJUVANT CHEMOTHERAPY, FOLFOX REGIMEN
     Route: 065
  2. OXALIPLATIN. [Suspect]
     Active Substance: OXALIPLATIN
     Indication: RECTAL CANCER
     Dosage: AS ADJUVANT CHEMOTHERAPY, FOLFOX REGIMEN
     Route: 065
  3. 5-FLUOROURACIL [Suspect]
     Active Substance: FLUOROURACIL
     Indication: RECTAL CANCER
     Dosage: AS ADJUVANT CHEMOTHERAPY, FOLFOX REGIMEN
     Route: 065

REACTIONS (1)
  - Ischiorectal hernia [Recovering/Resolving]
